FAERS Safety Report 10146892 (Version 1)
Quarter: 2014Q2

REPORT INFORMATION
  Report Type: Spontaneous
  Country: US (occurrence: None)
  Receive Date: 20140430
  Receipt Date: 20140430
  Transmission Date: 20141212
  Serious: Yes (Hospitalization)
  Sender: FDA-Public Use
  Company Number: None

PATIENT
  Age: 75 Year
  Sex: Male

DRUGS (7)
  1. WARFARIN [Suspect]
     Indication: AORTIC VALVE REPLACEMENT
     Dosage: 3 MG ALTERNATING 4MG, DAILY, PO?
     Route: 048
     Dates: end: 20130825
  2. CEFEPIME [Concomitant]
  3. DIPHENHYDRAMINE [Concomitant]
  4. LEVOTHYROXINE [Concomitant]
  5. METRONIDAZOLE [Concomitant]
  6. PANTOPRAZOLE [Concomitant]
  7. WARFARIN [Concomitant]

REACTIONS (3)
  - International normalised ratio increased [None]
  - Faeces discoloured [None]
  - Abdominal pain [None]
